FAERS Safety Report 4987640-6 (Version None)
Quarter: 2006Q2

REPORT INFORMATION
  Report Type: 
  Country: None (occurrence: None)
  Receive Date: 20060427
  Receipt Date: 20060427
  Transmission Date: 20061013
  Serious: Yes (Other)
  Sender: FDA-Public Use
  Company Number: None

PATIENT
  Sex: Female
  Weight: 65.4 kg

DRUGS (3)
  1. CYTARABINE [Suspect]
     Indication: ACUTE MYELOID LEUKAEMIA
     Dosage: 1200 MG
     Route: 042
  2. DAUNORUBICIN [Suspect]
     Dosage: 232 MG
     Route: 042
  3. MYLOTARG [Suspect]
     Dosage: 10 MG
     Route: 042

REACTIONS (2)
  - PLATELET COUNT DECREASED [None]
  - PYREXIA [None]
